FAERS Safety Report 9412364 (Version 1)
Quarter: 2013Q3

REPORT INFORMATION
  Report Type: Spontaneous
  Country: US (occurrence: US)
  Receive Date: 20130722
  Receipt Date: 20130722
  Transmission Date: 20140515
  Serious: No
  Sender: FDA-Public Use
  Company Number: US-BAUSCH-BL-2013-000653

PATIENT
  Age: 71 Year
  Sex: Female

DRUGS (4)
  1. ISTALOL [Suspect]
     Indication: NORMAL TENSION GLAUCOMA
     Dosage: 1 DROP; ONCE DAILY; OPHTHALMIC
     Route: 047
     Dates: start: 20120422
  2. LOSARTAN [Concomitant]
     Indication: HYPERTENSION
     Route: 048
  3. BYSTOLIC [Concomitant]
     Indication: HYPERTENSION
     Route: 048
  4. TRAVATAN Z [Concomitant]
     Indication: NORMAL TENSION GLAUCOMA
     Route: 047

REACTIONS (1)
  - Psoriasis [Not Recovered/Not Resolved]
